FAERS Safety Report 8486529-8 (Version None)
Quarter: 2012Q3

REPORT INFORMATION
  Report Type: 
  Country: None (occurrence: None)
  Receive Date: 20120703
  Receipt Date: 20120625
  Transmission Date: 20120928
  Serious: Yes (Death)
  Sender: FDA-Public Use
  Company Number: FR-FRI-1000025231

PATIENT
  Sex: Male
  Weight: 82 kg

DRUGS (4)
  1. ESCITALOPRAM [Suspect]
     Indication: DEPRESSION
     Dosage: 10 MG
     Dates: start: 20110701, end: 20110701
  2. ALPRAZOLAM [Concomitant]
     Indication: DEPRESSION
     Dosage: 0.375 MG
     Route: 048
     Dates: start: 20110711
  3. THERALENE [Concomitant]
     Indication: SLEEP DISORDER
     Dosage: 10 DF
     Route: 048
     Dates: start: 20110711
  4. ESCITALOPRAM [Suspect]
     Dosage: 10 MG
     Dates: start: 20110711

REACTIONS (2)
  - COMPLETED SUICIDE [None]
  - HYPERHIDROSIS [None]
